FAERS Safety Report 24981670 (Version 1)
Quarter: 2025Q1

REPORT INFORMATION
  Report Type: Spontaneous
  Country: GR (occurrence: GR)
  Receive Date: 20250218
  Receipt Date: 20250218
  Transmission Date: 20250408
  Serious: Yes (Other)
  Sender: BAYER HEALTHCARE PHARMACEUTICALS INC.
  Company Number: None

PATIENT
  Age: 86 Year
  Sex: Male
  Weight: 70 kg

DRUGS (2)
  1. AVELOX [Suspect]
     Active Substance: MOXIFLOXACIN HYDROCHLORIDE
     Indication: Respiratory tract infection
     Dosage: 500 MG, BID
     Route: 048
     Dates: start: 20241107, end: 20241114
  2. AMLOPEN [Concomitant]
     Indication: Hypertension
     Dosage: 5 MG, QD
     Route: 048

REACTIONS (3)
  - Mental disorder [Unknown]
  - Depression [Unknown]
  - Decreased appetite [Unknown]
